FAERS Safety Report 24242022 (Version 1)
Quarter: 2024Q3

REPORT INFORMATION
  Report Type: Spontaneous
  Country: US (occurrence: None)
  Receive Date: 20240822
  Receipt Date: 20240822
  Transmission Date: 20241016
  Serious: Yes (Hospitalization)
  Sender: Public
  Company Number: None

PATIENT
  Age: 68 Year
  Sex: Female

DRUGS (2)
  1. AUSTEDO XR [Suspect]
     Active Substance: DEUTETRABENAZINE
     Indication: Dyskinesia
     Dosage: 24MG DAILY BY MOUTH
     Route: 048
     Dates: start: 202403
  2. AUSTEDO XR [Suspect]
     Active Substance: DEUTETRABENAZINE
     Indication: Dyskinesia
     Dosage: 6MG DAILY BY MOUTH
     Route: 048
     Dates: start: 202403

REACTIONS (2)
  - Cerebrovascular accident [None]
  - Disease complication [None]

NARRATIVE: CASE EVENT DATE: 20240503
